FAERS Safety Report 5703843-7 (Version None)
Quarter: 2008Q2

REPORT INFORMATION
  Report Type: 
  Country: None (occurrence: None)
  Receive Date: 20080408
  Receipt Date: 20080402
  Transmission Date: 20081010
  Serious: Yes (Death)
  Sender: FDA-Public Use
  Company Number: 2008-01148

PATIENT
  Age: 78 Year
  Sex: Female
  Weight: 58 kg

DRUGS (10)
  1. VELCADE [Suspect]
     Indication: MULTIPLE MYELOMA
     Dosage: 2 MG, INTRAVENOUS
     Route: 042
     Dates: start: 20071120, end: 20080220
  2. CONIEL (BENIDIPINE HYDROCHLORIDE) [Concomitant]
  3. AMITRIPTYLINE HCL [Concomitant]
  4. LENDORM [Concomitant]
  5. ZOLPIDEM TARTRATE [Concomitant]
  6. RESLIN (TRAZODONE HYDROCHLORIDE) [Concomitant]
  7. DEPAS (ETIZOLAM) [Concomitant]
  8. MAGNESIUM OXIDE (MAGNESIUM OXIDE) [Concomitant]
  9. FAMOTIDINE [Concomitant]
  10. VALTREX [Concomitant]

REACTIONS (11)
  - BLOOD ALKALINE PHOSPHATASE INCREASED [None]
  - C-REACTIVE PROTEIN INCREASED [None]
  - DYSGEUSIA [None]
  - HEADACHE [None]
  - HERPES ZOSTER [None]
  - LYMPHOCYTE COUNT DECREASED [None]
  - MALAISE [None]
  - NAUSEA [None]
  - PLATELET COUNT DECREASED [None]
  - PROTEIN URINE PRESENT [None]
  - PYREXIA [None]
